FAERS Safety Report 20306271 (Version 1)
Quarter: 2022Q1

REPORT INFORMATION
  Report Type: Spontaneous
  Country: None (occurrence: US)
  Receive Date: 20220106
  Receipt Date: 20220106
  Transmission Date: 20220423
  Serious: No
  Sender: FDA-Public Use
  Company Number: US-Akron, Inc.-2123685

PATIENT
  Age: 24 Year
  Sex: Male

DRUGS (2)
  1. MYORISAN [Suspect]
     Active Substance: ISOTRETINOIN
     Indication: Acne
     Route: 048
     Dates: start: 20210713, end: 20211029
  2. protein suppliment [Concomitant]

REACTIONS (2)
  - Liver function test [Unknown]
  - Off label use [Recovered/Resolved]

NARRATIVE: CASE EVENT DATE: 20210101
